FAERS Safety Report 10278631 (Version 2)
Quarter: 2014Q3

REPORT INFORMATION
  Report Type: Spontaneous
  Country: US (occurrence: US)
  Receive Date: 20140704
  Receipt Date: 20140808
  Transmission Date: 20150326
  Serious: Yes (Other)
  Sender: FDA-Public Use
  Company Number: US-AMGEN-USASP2014049244

PATIENT
  Age: 72 Year
  Sex: Female
  Weight: 68.48 kg

DRUGS (6)
  1. FLONASE                            /00908302/ [Concomitant]
     Dosage: AT NIGHT
  2. VICODIN [Concomitant]
     Active Substance: ACETAMINOPHEN\HYDROCODONE BITARTRATE
     Indication: SCOLIOSIS
     Dosage: UNK UNK, TID
  3. COQ10                              /00517201/ [Concomitant]
  4. PROLIA [Suspect]
     Active Substance: DENOSUMAB
     Indication: OSTEOPOROSIS POSTMENOPAUSAL
     Dosage: 60 MG/ML, Q6MO
     Route: 058
     Dates: start: 20120116
  5. ZYRTEC [Concomitant]
     Active Substance: CETIRIZINE HYDROCHLORIDE
     Dosage: IN THE MORNING
  6. ASMANEX [Concomitant]
     Active Substance: MOMETASONE FUROATE

REACTIONS (24)
  - Bone disorder [Unknown]
  - Fall [Unknown]
  - Tendon disorder [Unknown]
  - Hypertrophy [Unknown]
  - Bile duct obstruction [Unknown]
  - Peripheral swelling [Unknown]
  - Rotator cuff syndrome [Unknown]
  - Bursitis [Unknown]
  - Erythema [Unknown]
  - Hand fracture [Unknown]
  - Gallbladder disorder [Unknown]
  - Malaise [Unknown]
  - Arthropathy [Unknown]
  - Gastrooesophageal reflux disease [Unknown]
  - Enthesopathy [Unknown]
  - Liver disorder [Unknown]
  - Musculoskeletal pain [Unknown]
  - Cholelithiasis [Unknown]
  - Cholecystitis acute [Unknown]
  - Blood cholesterol increased [Unknown]
  - Pain [Unknown]
  - Periarthritis [Unknown]
  - Nausea [Unknown]
  - Pain in extremity [Unknown]

NARRATIVE: CASE EVENT DATE: 201312
